FAERS Safety Report 25133761 (Version 2)
Quarter: 2025Q2

REPORT INFORMATION
  Report Type: Spontaneous
  Country: US (occurrence: US)
  Receive Date: 20250328
  Receipt Date: 20250409
  Transmission Date: 20250717
  Serious: Yes (Other)
  Sender: BRISTOL MYERS SQUIBB
  Company Number: US-BRISTOL-MYERS SQUIBB COMPANY-2025-041590

PATIENT
  Age: 74 Year
  Sex: Male

DRUGS (1)
  1. NIVOLUMAB\RELATLIMAB [Suspect]
     Active Substance: NIVOLUMAB\RELATLIMAB
     Indication: Malignant melanoma

REACTIONS (3)
  - Immune-mediated myasthenia gravis [Recovering/Resolving]
  - Immune-mediated myositis [Recovering/Resolving]
  - Immune-mediated myocarditis [Recovering/Resolving]
